FAERS Safety Report 6902754-9 (Version None)
Quarter: 2010Q3

REPORT INFORMATION
  Report Type: 
  Country: None (occurrence: None)
  Receive Date: 20100803
  Receipt Date: 20080802
  Transmission Date: 20110219
  Serious: Yes (Other)
  Sender: FDA-Public Use
  Company Number: US-PFIZER INC-2008052774

PATIENT
  Sex: Female
  Weight: 97.5 kg

DRUGS (11)
  1. LYRICA [Suspect]
     Indication: FIBROMYALGIA
     Dates: start: 20080612, end: 20080622
  2. CYMBALTA [Concomitant]
     Dates: start: 20060601
  3. VICODIN [Concomitant]
     Dosage: 5/500
  4. HYDROCODONE BITARTRATE [Concomitant]
  5. LEVOTHYROXINE [Concomitant]
  6. MULTI-VITAMINS [Concomitant]
  7. ADVIL LIQUI-GELS [Concomitant]
  8. ALBUTEROL [Concomitant]
  9. CLINDAMYCIN [Concomitant]
     Route: 061
  10. FLUOCINOLONE ACETONIDE [Concomitant]
     Route: 061
  11. IMITREX [Concomitant]

REACTIONS (6)
  - CHILLS [None]
  - DRUG INEFFECTIVE [None]
  - HEADACHE [None]
  - INFLUENZA [None]
  - PAIN [None]
  - SWOLLEN TONGUE [None]
